FAERS Safety Report 10661225 (Version 1)
Quarter: 2014Q4

REPORT INFORMATION
  Report Type: Spontaneous
  Country: US (occurrence: None)
  Receive Date: 20141216
  Receipt Date: 20141216
  Transmission Date: 20150529
  Serious: Yes (Hospitalization, Disabling, Other)
  Sender: FDA-Public Use
  Company Number: None

PATIENT
  Age: 55 Year
  Sex: Female
  Weight: 99.79 kg

DRUGS (1)
  1. LEVAQUIN [Suspect]
     Active Substance: LEVOFLOXACIN
     Indication: RENAL DISORDER
     Dosage: 750
     Route: 048
     Dates: start: 20130114, end: 20130116

REACTIONS (7)
  - Rotator cuff syndrome [None]
  - Tendon rupture [None]
  - Spinal osteoarthritis [None]
  - Spinal column stenosis [None]
  - Gait disturbance [None]
  - Arthropathy [None]
  - Neuropathy peripheral [None]

NARRATIVE: CASE EVENT DATE: 20121231
